FAERS Safety Report 9097563 (Version 2)
Quarter: 2013Q1

REPORT INFORMATION
  Report Type: Spontaneous
  Country: US (occurrence: US)
  Receive Date: 20130212
  Receipt Date: 20130304
  Transmission Date: 20140127
  Serious: No
  Sender: FDA-Public Use
  Company Number: US-PFIZER INC-2013053196

PATIENT
  Age: 59 Year
  Sex: Female
  Weight: 67 kg

DRUGS (1)
  1. LEVOXYL [Suspect]
     Indication: AUTOIMMUNE THYROIDITIS
     Dosage: 87.5 MG, 1X/DAY
     Route: 048

REACTIONS (2)
  - Product quality issue [Unknown]
  - Discomfort [Unknown]
